FAERS Safety Report 23243765 (Version 1)
Quarter: 2023Q4

REPORT INFORMATION
  Report Type: Spontaneous
  Country: US (occurrence: US)
  Receive Date: 20231130
  Receipt Date: 20231130
  Transmission Date: 20240110
  Serious: No
  Sender: FDA-Public Use
  Company Number: US-CHIESI-2023CHF00402

PATIENT
  Age: 6 Year
  Sex: Male
  Weight: 15.4 kg

DRUGS (12)
  1. REVCOVI [Suspect]
     Active Substance: ELAPEGADEMASE-LVLR
     Indication: Combined immunodeficiency
     Dosage: 2.4MG/1,5ML
     Route: 030
     Dates: start: 20221229, end: 20221229
  2. REVCOVI [Suspect]
     Active Substance: ELAPEGADEMASE-LVLR
     Dosage: 2.4 MG, ONCE WEEKLY
     Route: 065
     Dates: start: 20210804, end: 20210804
  3. REVCOVI [Suspect]
     Active Substance: ELAPEGADEMASE-LVLR
     Dosage: 2.4 MG/1.5 ML, ONCE A WEEK
     Route: 030
     Dates: start: 20220630, end: 20220630
  4. REVCOVI [Suspect]
     Active Substance: ELAPEGADEMASE-LVLR
     Dosage: 2.4 MG/1.5 ML, ONCE WEEKLY
     Route: 030
     Dates: start: 20230107, end: 20230107
  5. REVCOVI [Suspect]
     Active Substance: ELAPEGADEMASE-LVLR
     Dosage: 2.4 MG/1.5 ML, ONCE WEEKLY
     Route: 030
     Dates: start: 20230113, end: 20230113
  6. REVCOVI [Suspect]
     Active Substance: ELAPEGADEMASE-LVLR
     Dosage: 2.4 MG/1.5 ML, ONCE WEELY
     Route: 030
     Dates: start: 20230120, end: 20230120
  7. REVCOVI [Suspect]
     Active Substance: ELAPEGADEMASE-LVLR
     Dosage: 2.4 MG/1.5 ML, ONCE WEEKLY
     Route: 030
     Dates: start: 20230127, end: 20230127
  8. REVCOVI [Suspect]
     Active Substance: ELAPEGADEMASE-LVLR
     Dosage: 2.4 MG/1.5 ML, ONCE WEEKLY
     Route: 030
     Dates: start: 20230203
  9. LIDOCAINE\PRILOCAINE [Concomitant]
     Active Substance: LIDOCAINE\PRILOCAINE
     Indication: Product used for unknown indication
     Dosage: 2.5 %-2.5%, APPLY 1 APPLICATION APPLIED TOPICALLY ONCE FOR TOPICAL ANESTHETIC
     Route: 061
     Dates: start: 20220630
  10. ACETAMINOPHEN [Concomitant]
     Active Substance: ACETAMINOPHEN
     Indication: Pain
     Dosage: 160 MG/5 ML, TAKE 192 MG, TWO TIMES A DAY AS NEEDED
     Route: 048
     Dates: start: 20220630
  11. ACETAMINOPHEN [Concomitant]
     Active Substance: ACETAMINOPHEN
     Indication: Pyrexia
  12. DIPHENDRAMINE EXPECTORANT [Concomitant]
     Indication: Product used for unknown indication
     Dosage: 12.5 MG/5 ML
     Route: 048
     Dates: start: 20220630

REACTIONS (1)
  - Viral infection [Recovering/Resolving]

NARRATIVE: CASE EVENT DATE: 20230101
